FAERS Safety Report 6287789-4 (Version None)
Quarter: 2009Q3

REPORT INFORMATION
  Report Type: 
  Country: None (occurrence: None)
  Receive Date: 20090729
  Receipt Date: 20090720
  Transmission Date: 20100115
  Serious: Yes (Death, Hospitalization)
  Sender: FDA-Public Use
  Company Number: US-BIOGENIDEC-2009BI001355

PATIENT
  Sex: Female
  Weight: 63 kg

DRUGS (15)
  1. TYSABRI [Suspect]
     Indication: MULTIPLE SCLEROSIS
     Route: 042
     Dates: start: 20070416, end: 20080403
  2. TYSABRI [Suspect]
     Route: 042
     Dates: start: 20081223
  3. FOSAMAX [Concomitant]
     Route: 048
  4. NORVASC [Concomitant]
     Route: 048
  5. ASPIRIN [Concomitant]
     Route: 048
  6. BACLOFEN [Concomitant]
     Route: 048
  7. BACLOFEN [Concomitant]
     Route: 048
  8. CALCIUM WITH D [Concomitant]
     Route: 048
  9. KLONOPIN [Concomitant]
     Route: 048
  10. ESOMEPRAZOLE MAGNESIUM [Concomitant]
     Route: 048
  11. MULTI-VITAMIN [Concomitant]
     Route: 048
  12. FISH OIL [Concomitant]
     Route: 048
  13. DITROPAN [Concomitant]
     Route: 048
  14. RYTHMOL [Concomitant]
     Indication: ARRHYTHMIA
     Route: 048
  15. AMBIEN [Concomitant]
     Route: 048

REACTIONS (5)
  - BLOOD ETHANOL INCREASED [None]
  - DEPRESSION [None]
  - DRUG INEFFECTIVE [None]
  - MULTIPLE SCLEROSIS RELAPSE [None]
  - THERAPEUTIC AGENT TOXICITY [None]
